FAERS Safety Report 9193998 (Version 1)
Quarter: 2013Q1

REPORT INFORMATION
  Report Type: Spontaneous
  Country: US (occurrence: US)
  Receive Date: 20130327
  Receipt Date: 20130327
  Transmission Date: 20140127
  Serious: No
  Sender: FDA-Public Use
  Company Number: US-TEVA-394631USA

PATIENT
  Sex: Male
  Weight: 64.92 kg

DRUGS (1)
  1. PROAIR HFA [Suspect]
     Dosage: 102 PUFFS Q 4-6 HRS PRN
     Route: 055

REACTIONS (1)
  - Viral infection [Unknown]
